FAERS Safety Report 14013113 (Version 1)
Quarter: 2017Q3

REPORT INFORMATION
  Report Type: Spontaneous
  Country: AU (occurrence: AU)
  Receive Date: 20170926
  Receipt Date: 20170926
  Transmission Date: 20171128
  Serious: Yes (Other)
  Sender: FDA-Public Use
  Company Number: AU-ELI_LILLY_AND_COMPANY-AU201709007164

PATIENT
  Age: 17 Year
  Sex: Male

DRUGS (1)
  1. ZYPREXA [Suspect]
     Active Substance: OLANZAPINE
     Indication: ANXIETY
     Dosage: 5 MG, UNKNOWN
     Route: 048

REACTIONS (4)
  - Abnormal behaviour [Unknown]
  - Off label use [Unknown]
  - Akathisia [Unknown]
  - Psychotic disorder [Unknown]
